FAERS Safety Report 8228180-0 (Version None)
Quarter: 2012Q1

REPORT INFORMATION
  Report Type: 
  Country: None (occurrence: None)
  Receive Date: 20120322
  Receipt Date: 20111208
  Transmission Date: 20120608
  Serious: No
  Sender: FDA-Public Use
  Company Number: US-BRISTOL-MYERS SQUIBB COMPANY-16280448

PATIENT
  Age: 73 Year
  Sex: Male

DRUGS (10)
  1. OXALIPLATIN [Suspect]
  2. ZYRTEC [Concomitant]
     Indication: HYPERSENSITIVITY
  3. FLUOROURACIL [Suspect]
  4. ERBITUX [Suspect]
  5. XGEVA [Suspect]
  6. LUMIGAN [Concomitant]
     Indication: GLAUCOMA
  7. ASPIRIN [Concomitant]
     Dosage: LOW DOSE
  8. LEUCOVORIN CALCIUM [Suspect]
  9. DOXYCYCLINE [Concomitant]
     Indication: RASH
  10. AVODART [Concomitant]
     Indication: PROSTATISM

REACTIONS (1)
  - RASH [None]
